FAERS Safety Report 8475218-1 (Version None)
Quarter: 2012Q2

REPORT INFORMATION
  Report Type: 
  Country: None (occurrence: None)
  Receive Date: 20120628
  Receipt Date: 20111017
  Transmission Date: 20120825
  Serious: Yes (Other)
  Sender: FDA-Public Use
  Company Number: US-ROCHE-1005307

PATIENT
  Sex: Male

DRUGS (4)
  1. DYAZIDE [Suspect]
     Indication: HYPERTENSION
     Route: 065
  2. ACCUPRIL [Concomitant]
     Indication: HYPERTENSION
     Route: 065
  3. XENICAL [Suspect]
     Indication: WEIGHT DECREASED
     Route: 048
  4. WARFARIN SODIUM [Concomitant]
     Indication: THROMBOSIS PROPHYLAXIS
     Route: 065

REACTIONS (2)
  - DEEP VEIN THROMBOSIS [None]
  - DRUG INEFFECTIVE [None]
